FAERS Safety Report 25492044 (Version 1)
Quarter: 2025Q2

REPORT INFORMATION
  Report Type: Spontaneous
  Country: BR (occurrence: BR)
  Receive Date: 20250630
  Receipt Date: 20250630
  Transmission Date: 20250716
  Serious: Yes (Other)
  Sender: STRIDES
  Company Number: BR-STRIDES ARCOLAB LIMITED-2025SP008018

PATIENT
  Age: 3 Year
  Sex: Male

DRUGS (11)
  1. TOPIRAMATE [Suspect]
     Active Substance: TOPIRAMATE
     Indication: Epilepsy with myoclonic-atonic seizures
     Route: 065
     Dates: start: 20220616
  2. TOPIRAMATE [Suspect]
     Active Substance: TOPIRAMATE
     Route: 065
     Dates: start: 20220622
  3. TOPIRAMATE [Suspect]
     Active Substance: TOPIRAMATE
     Route: 065
  4. CANNABIDIOL [Concomitant]
     Active Substance: CANNABIDIOL
     Indication: Epilepsy with myoclonic-atonic seizures
     Route: 065
     Dates: start: 20220331
  5. CANNABIDIOL [Concomitant]
     Active Substance: CANNABIDIOL
     Route: 065
     Dates: start: 20220616
  6. CANNABIDIOL [Concomitant]
     Active Substance: CANNABIDIOL
     Route: 065
  7. CLOBAZAM [Concomitant]
     Active Substance: CLOBAZAM
     Indication: Epilepsy with myoclonic-atonic seizures
     Route: 065
     Dates: start: 20211017
  8. LEVETIRACETAM [Concomitant]
     Active Substance: LEVETIRACETAM
     Indication: Epilepsy with myoclonic-atonic seizures
     Route: 065
     Dates: start: 20211021
  9. VALPROATE [Concomitant]
     Active Substance: VALPROIC ACID
     Indication: Epilepsy with myoclonic-atonic seizures
     Route: 065
     Dates: start: 20210930
  10. VALPROATE [Concomitant]
     Active Substance: VALPROIC ACID
     Route: 065
     Dates: start: 20211007
  11. VALPROATE [Concomitant]
     Active Substance: VALPROIC ACID
     Route: 065
     Dates: start: 20211017

REACTIONS (3)
  - Urinary retention [Unknown]
  - Urinary tract infection [Unknown]
  - Behaviour disorder [Unknown]
